FAERS Safety Report 9226850 (Version 1)
Quarter: 2013Q2

REPORT INFORMATION
  Report Type: Spontaneous
  Country: US (occurrence: None)
  Receive Date: 20130410
  Receipt Date: 20130410
  Transmission Date: 20140414
  Serious: Yes (Hospitalization)
  Sender: FDA-Public Use
  Company Number: None

PATIENT
  Age: 33 Year
  Sex: Female
  Weight: 53.6 kg

DRUGS (13)
  1. FLECTOR [Suspect]
     Indication: ARTHRALGIA
     Dosage: RECENT
     Route: 061
  2. PROZAC [Concomitant]
  3. MINOCYCLINE [Concomitant]
  4. RISPERDAL [Concomitant]
  5. LEXAPRO [Concomitant]
  6. VALIUM [Concomitant]
  7. ABILIFY [Concomitant]
  8. ALBUTEROL [Concomitant]
  9. VALTREX [Concomitant]
  10. ADDERALL [Concomitant]
  11. ETODOLAC [Concomitant]
  12. ZANAFLEX [Concomitant]
  13. LORAZEPAM [Concomitant]

REACTIONS (1)
  - Drug hypersensitivity [None]
